FAERS Safety Report 16387143 (Version 2)
Quarter: 2019Q2

REPORT INFORMATION
  Report Type: Spontaneous
  Country: US (occurrence: US)
  Receive Date: 20190604
  Receipt Date: 20190620
  Transmission Date: 20190711
  Serious: Yes (Congenital Anomaly, Other)
  Sender: FDA-Public Use
  Company Number: US-AUROBINDO-AUR-APL-2019-030310

PATIENT

DRUGS (3)
  1. AMIODARONE HYDROCHLORIDE. [Suspect]
     Active Substance: AMIODARONE HYDROCHLORIDE
     Indication: TACHYCARDIA FOETAL
     Dosage: 200 MILLIGRAM, TWO TIMES A DAY FOR 8 DAYS
     Route: 064
  2. AMIODARONE HYDROCHLORIDE. [Suspect]
     Active Substance: AMIODARONE HYDROCHLORIDE
     Indication: SUPRAVENTRICULAR TACHYCARDIA
     Dosage: LOADING DOSE OF 800 MG ON DAY 1
     Route: 064
  3. AMIODARONE HYDROCHLORIDE. [Suspect]
     Active Substance: AMIODARONE HYDROCHLORIDE
     Indication: HYDROPS FOETALIS
     Dosage: 400 MILLIGRAM, TWO TIMES A DAY ON DAY 2
     Route: 064

REACTIONS (6)
  - Hypothyroidism [Recovered/Resolved]
  - Premature baby [Unknown]
  - Congenital hypothyroidism [Recovered/Resolved]
  - Blood thyroid stimulating hormone increased [Recovered/Resolved]
  - Foetal exposure during pregnancy [Recovered/Resolved]
  - Thyroxine decreased [Recovered/Resolved]
